FAERS Safety Report 14854825 (Version 2)
Quarter: 2019Q2

REPORT INFORMATION
  Report Type: Spontaneous
  Country: US (occurrence: US)
  Receive Date: 20180507
  Receipt Date: 20190509
  Transmission Date: 20190711
  Serious: No
  Sender: FDA-Public Use
  Company Number: US-ROCHE-1902231

PATIENT
  Sex: Male
  Weight: 73.55 kg

DRUGS (4)
  1. ESBRIET [Suspect]
     Active Substance: PIRFENIDONE
     Route: 048
     Dates: start: 20161229
  2. ESBRIET [Suspect]
     Active Substance: PIRFENIDONE
     Route: 048
  3. GABAPENTIN. [Concomitant]
     Active Substance: GABAPENTIN
  4. ESBRIET [Suspect]
     Active Substance: PIRFENIDONE
     Indication: IDIOPATHIC PULMONARY FIBROSIS
     Route: 048
     Dates: start: 20160301

REACTIONS (4)
  - Headache [Unknown]
  - Rash erythematous [Unknown]
  - Hot flush [Unknown]
  - Rash pruritic [Unknown]
